FAERS Safety Report 18918240 (Version 1)
Quarter: 2021Q1

REPORT INFORMATION
  Report Type: Spontaneous
  Country: HU (occurrence: HU)
  Receive Date: 20210219
  Receipt Date: 20210219
  Transmission Date: 20210420
  Serious: Yes (Hospitalization)
  Sender: FDA-Public Use
  Company Number: HU-TEVA-2020-HU-1196050

PATIENT
  Sex: Female

DRUGS (1)
  1. COPAXONE [Suspect]
     Active Substance: GLATIRAMER ACETATE
     Indication: MULTIPLE SCLEROSIS
     Route: 064
     Dates: start: 20170403, end: 20190311

REACTIONS (2)
  - Foetal exposure during pregnancy [Unknown]
  - Stridor [Recovered/Resolved]

NARRATIVE: CASE EVENT DATE: 20190125
